FAERS Safety Report 10006522 (Version 1)
Quarter: 2014Q1

REPORT INFORMATION
  Report Type: Report from Study
  Country: US (occurrence: US)
  Receive Date: 20140313
  Receipt Date: 20140313
  Transmission Date: 20141002
  Serious: Yes (Hospitalization)
  Sender: FDA-Public Use
  Company Number: US-SA-2014SA032016

PATIENT
  Age: 78 Year
  Sex: Male

DRUGS (9)
  1. DRONEDARONE [Suspect]
     Indication: PRODUCT USED FOR UNKNOWN INDICATION
     Route: 065
  2. DABIGATRAN [Interacting]
     Indication: PRODUCT USED FOR UNKNOWN INDICATION
     Route: 065
  3. PEPCID [Concomitant]
  4. LIPITOR [Concomitant]
  5. LASIX [Concomitant]
  6. ALLOPURINOL [Concomitant]
  7. PLENDIL [Concomitant]
  8. VITAMIN D [Concomitant]
  9. ASPIRIN [Concomitant]

REACTIONS (3)
  - Gastrointestinal haemorrhage [Unknown]
  - Drug interaction [Unknown]
  - Melaena [Unknown]
